FAERS Safety Report 24819216 (Version 3)
Quarter: 2025Q1

REPORT INFORMATION
  Report Type: Spontaneous
  Country: US (occurrence: US)
  Receive Date: 20250108
  Receipt Date: 20250116
  Transmission Date: 20250409
  Serious: Yes (Other)
  Sender: PFIZER
  Company Number: US-PFIZER INC-202500002707

PATIENT
  Age: 65 Year
  Sex: Male

DRUGS (1)
  1. LORBRENA [Suspect]
     Active Substance: LORLATINIB
     Dosage: 100 MG, 1X/DAY (DAILY)
     Route: 048

REACTIONS (4)
  - Hip fracture [Unknown]
  - Spinal fracture [Unknown]
  - Fall [Unknown]
  - Intervertebral disc degeneration [Unknown]
